FAERS Safety Report 8806528 (Version 3)
Quarter: 2014Q2

REPORT INFORMATION
  Report Type: Spontaneous
  Country: US (occurrence: US)
  Receive Date: 20120925
  Receipt Date: 20140508
  Transmission Date: 20141212
  Serious: Yes (Hospitalization)
  Sender: FDA-Public Use
  Company Number: US-BAYER-2012-097514

PATIENT
  Age: 21 Year
  Sex: Female
  Weight: 61.22 kg

DRUGS (5)
  1. YASMIN [Suspect]
     Dosage: UNK
     Dates: start: 199001, end: 201010
  2. YASMIN [Suspect]
     Dosage: UNK
     Dates: start: 200101, end: 201006
  3. YAZ [Suspect]
     Dosage: UNK
     Dates: start: 200101, end: 201006
  4. MOTRIN [Concomitant]
     Dosage: UNK
     Route: 048
     Dates: start: 200201, end: 200201
  5. PREVACID [Concomitant]

REACTIONS (8)
  - Cholecystitis [None]
  - Pain [None]
  - Injury [None]
  - General physical health deterioration [None]
  - Emotional distress [None]
  - Anxiety [None]
  - Anhedonia [None]
  - Pain [None]
